FAERS Safety Report 18945344 (Version 1)
Quarter: 2021Q1

REPORT INFORMATION
  Report Type: Spontaneous
  Country: FR (occurrence: FR)
  Receive Date: 20210226
  Receipt Date: 20210226
  Transmission Date: 20210420
  Serious: Yes (Other)
  Sender: FDA-Public Use
  Company Number: FR-MYLANLABS-2021M1009798

PATIENT
  Age: 16 Year
  Sex: Female

DRUGS (2)
  1. DOXYCYCLINE MYLAN [Suspect]
     Active Substance: DOXYCYCLINE
     Indication: ACNE
     Dosage: FOR A FEW MONTHS/TAKEN FOR 3 DAYS
  2. DOXYCYCLINE MYLAN [Suspect]
     Active Substance: DOXYCYCLINE
     Dosage: TAKEN AGAIN 3 DAYS

REACTIONS (4)
  - Lymphopenia [Unknown]
  - Condition aggravated [Unknown]
  - Lupus-like syndrome [Unknown]
  - Product dose omission issue [Unknown]
